FAERS Safety Report 19722243 (Version 1)
Quarter: 2021Q3

REPORT INFORMATION
  Report Type: Spontaneous
  Country: US (occurrence: US)
  Receive Date: 20210819
  Receipt Date: 20210819
  Transmission Date: 20211014
  Serious: Yes (Other)
  Sender: FDA-Public Use
  Company Number: US-ORGANON-O2108USA001281

PATIENT

DRUGS (1)
  1. COZAAR [Suspect]
     Active Substance: LOSARTAN POTASSIUM
     Dosage: UNK

REACTIONS (11)
  - Peripheral swelling [Unknown]
  - Urinary tract infection [Unknown]
  - Back pain [Unknown]
  - Retching [Unknown]
  - Muscle strain [Unknown]
  - Decreased appetite [Unknown]
  - Clostridium difficile infection [Unknown]
  - Limb injury [Unknown]
  - Oedema [Unknown]
  - Vomiting [Unknown]
  - Blood pressure decreased [Unknown]
